FAERS Safety Report 9270047 (Version 6)
Quarter: 2013Q4

REPORT INFORMATION
  Report Type: Spontaneous
  Country: US (occurrence: US)
  Receive Date: 20130503
  Receipt Date: 20131210
  Transmission Date: 20140711
  Serious: Yes (Hospitalization, Disabling, Other)
  Sender: FDA-Public Use
  Company Number: US-MERCK-1304USA017007

PATIENT
  Sex: Female
  Weight: 68.48 kg

DRUGS (11)
  1. FOSAMAX [Suspect]
     Indication: OSTEOPOROSIS
     Dosage: 10 MG, UNK
     Route: 048
     Dates: start: 199905, end: 200110
  2. FOSAMAX [Suspect]
     Dosage: 70 MG, UNK
     Route: 048
     Dates: start: 200110, end: 200802
  3. ALENDRONATE SODIUM [Suspect]
     Indication: OSTEOPOROSIS
     Dosage: 70 MG, UNK
     Route: 048
     Dates: start: 200802, end: 200812
  4. ALENDRONATE SODIUM [Suspect]
     Dosage: UNK
     Route: 048
     Dates: end: 2011
  5. TACROLIMUS [Concomitant]
     Indication: PROPHYLAXIS AGAINST TRANSPLANT REJECTION
     Dosage: 2 MG IN AM, 1 MG PM
     Dates: start: 1997
  6. PREDNISONE [Concomitant]
     Indication: PROPHYLAXIS AGAINST TRANSPLANT REJECTION
     Dosage: 5 MG, QD
  7. VITAMINS (UNSPECIFIED) [Concomitant]
     Dosage: 1 DF, QD
     Dates: start: 1997
  8. CALCIUM (UNSPECIFIED) (+) VITAMIN D (UNSPECIFIED) [Concomitant]
     Dosage: 600/400 IU, UNK
     Dates: start: 1997
  9. NORVASC [Concomitant]
     Indication: HYPERTENSION
     Dosage: 2.5 MG, UNK
  10. ATENOLOL [Concomitant]
     Indication: HYPERTENSION
     Dosage: 25 MG, QD
  11. LASIX (FUROSEMIDE) [Concomitant]
     Indication: HYPERTENSION
     Dosage: 40 MG, QOD

REACTIONS (52)
  - Femur fracture [Unknown]
  - Femur fracture [Unknown]
  - Intramedullary rod insertion [Unknown]
  - Open reduction of fracture [Unknown]
  - Internal fixation of fracture [Unknown]
  - Femur fracture [Unknown]
  - Acetabulum fracture [Unknown]
  - Skin necrosis [Unknown]
  - Spinal fracture [Not Recovered/Not Resolved]
  - Renal failure [Not Recovered/Not Resolved]
  - Parathyroidectomy [Unknown]
  - Parathyroidectomy [Unknown]
  - Pelvic fracture [Unknown]
  - Spinal compression fracture [Unknown]
  - Hip arthroplasty [Unknown]
  - Rib fracture [Recovered/Resolved]
  - Device failure [Unknown]
  - Calcium deficiency [Unknown]
  - Hyperparathyroidism [Unknown]
  - Hyperchlorhydria [Unknown]
  - Hyperthyroidism [Unknown]
  - Rib fracture [Unknown]
  - Low turnover osteopathy [Unknown]
  - Weight decreased [Unknown]
  - Blood phosphorus increased [Unknown]
  - Oedema [Unknown]
  - Kyphosis [Unknown]
  - Osteopenia [Unknown]
  - Spinal deformity [Unknown]
  - Cough [Unknown]
  - Hiatus hernia [Unknown]
  - Pleural fibrosis [Unknown]
  - Bone density decreased [Unknown]
  - Injury [Unknown]
  - Joint dislocation [Recovered/Resolved]
  - Conjunctivitis [Unknown]
  - Haemoglobin decreased [Unknown]
  - Osteoarthritis [Unknown]
  - Pubis fracture [Unknown]
  - Sacroiliitis [Unknown]
  - Gout [Unknown]
  - Blood glucose increased [Unknown]
  - Compression fracture [Unknown]
  - Hypokalaemia [Unknown]
  - Blood magnesium abnormal [Unknown]
  - Hypotension [Unknown]
  - Acidosis [Unknown]
  - Appendicectomy [Unknown]
  - Rib fracture [Unknown]
  - Blood cholesterol increased [Unknown]
  - Hypophosphataemia [Unknown]
  - Alopecia [Unknown]
